FAERS Safety Report 8158076-4 (Version None)
Quarter: 2012Q1

REPORT INFORMATION
  Report Type: 
  Country: None (occurrence: None)
  Receive Date: 20120222
  Receipt Date: 20120220
  Transmission Date: 20120608
  Serious: Yes (Hospitalization, Disabling)
  Sender: FDA-Public Use
  Company Number: DE-MERCK-1201DEU00009

PATIENT
  Age: 74 Year
  Sex: Female

DRUGS (10)
  1. ZOCOR [Suspect]
     Route: 048
     Dates: start: 20110101, end: 20110721
  2. PHENPROCOUMON [Concomitant]
     Indication: ATRIAL FIBRILLATION
     Route: 048
  3. TORSEMIDE [Concomitant]
     Route: 065
  4. ALLOPURINOL [Concomitant]
     Route: 065
  5. RAMIPRIL [Concomitant]
     Route: 065
  6. METOPROLOL [Concomitant]
     Route: 065
  7. METFORMIN [Concomitant]
     Route: 065
  8. ZOCOR [Suspect]
     Dosage: STARTED SEVERAL YEARS AGO
     Route: 048
     Dates: end: 20110101
  9. VYTORIN [Suspect]
     Indication: HYPERCHOLESTEROLAEMIA
     Route: 048
     Dates: start: 20110101, end: 20110101
  10. PANTOPRAZOLE [Concomitant]
     Route: 065

REACTIONS (7)
  - RHABDOMYOLYSIS [None]
  - MONOPARESIS [None]
  - MYOPATHY [None]
  - PERIPHERAL SENSORY NEUROPATHY [None]
  - PARESIS [None]
  - TENDERNESS [None]
  - FALL [None]
